FAERS Safety Report 4602457-X (Version None)
Quarter: 2005Q1

REPORT INFORMATION
  Report Type: 
  Country: None (occurrence: None)
  Receive Date: 20050309
  Receipt Date: 20050304
  Transmission Date: 20050727
  Serious: Yes (Other)
  Sender: FDA-Public Use
  Company Number: US-JNJFOC-20050301825

PATIENT
  Sex: Female
  Weight: 49.9 kg

DRUGS (3)
  1. CONCERTA [Suspect]
     Route: 049
     Dates: start: 20020301
  2. CONCERTA [Suspect]
     Route: 049
     Dates: start: 20020301
  3. ESTROGEN REPLACEMENT [Concomitant]

REACTIONS (6)
  - ABDOMINAL PAIN UPPER [None]
  - BACK DISORDER [None]
  - DIZZINESS [None]
  - HEPATIC LESION [None]
  - PLATELET COUNT DECREASED [None]
  - WHITE BLOOD CELL COUNT DECREASED [None]
